FAERS Safety Report 8136279-2 (Version None)
Quarter: 2012Q1

REPORT INFORMATION
  Report Type: 
  Country: None (occurrence: None)
  Receive Date: 20120103
  Receipt Date: 20111024
  Transmission Date: 20120608
  Serious: No
  Sender: FDA-Public Use
  Company Number: AE-2011-002641

PATIENT
  Age: 62 Year
  Sex: Male
  Weight: 73.4827 kg

DRUGS (6)
  1. PEGASYS [Concomitant]
  2. PRILOSEC [Concomitant]
  3. INCIVEK [Suspect]
     Dosage: 2250 MG (750 MG,1 IN 8 HR)
     Dates: start: 20111009
  4. RIBAVIRIN [Concomitant]
  5. IBUPROFEN (ADVIL) [Concomitant]
  6. ALLOPURINOL [Concomitant]

REACTIONS (3)
  - DRUG DOSE OMISSION [None]
  - VOMITING [None]
  - DIARRHOEA [None]
